FAERS Safety Report 19220773 (Version 1)
Quarter: 2021Q2

REPORT INFORMATION
  Report Type: Report from Study
  Country: GB (occurrence: GB)
  Receive Date: 20210505
  Receipt Date: 20210505
  Transmission Date: 20210717
  Serious: Yes (Other)
  Sender: FDA-Public Use
  Company Number: GB-SAMSUNG BIOEPIS-SB-2021-11029

PATIENT
  Age: 32 Year
  Sex: Male

DRUGS (1)
  1. IMRALDI [Suspect]
     Active Substance: ADALIMUMAB
     Indication: COLITIS ULCERATIVE
     Dosage: WEEK ZERO
     Route: 058
     Dates: start: 20210427

REACTIONS (11)
  - Syncope [Unknown]
  - Speech disorder [Unknown]
  - Anal incontinence [Unknown]
  - Feeling hot [Unknown]
  - Cold sweat [Unknown]
  - Injection site pain [Unknown]
  - Limb discomfort [Unknown]
  - Balance disorder [Unknown]
  - Pallor [Unknown]
  - Eye movement disorder [Unknown]
  - Hypotension [Unknown]

NARRATIVE: CASE EVENT DATE: 20210427
